FAERS Safety Report 15718720 (Version 1)
Quarter: 2018Q4

REPORT INFORMATION
  Report Type: Spontaneous
  Country: US (occurrence: US)
  Receive Date: 20181213
  Receipt Date: 20181213
  Transmission Date: 20190205
  Serious: Yes (Disabling)
  Sender: FDA-Public Use
  Company Number: None

PATIENT
  Age: 34 Year
  Sex: Female
  Weight: 61.23 kg

DRUGS (1)
  1. MIRENA [Suspect]
     Active Substance: LEVONORGESTREL
     Indication: CONTRACEPTION
     Dates: start: 20150810, end: 20181004

REACTIONS (4)
  - Loss of libido [None]
  - Coccydynia [None]
  - Pelvic floor muscle weakness [None]
  - Vaginal discharge [None]

NARRATIVE: CASE EVENT DATE: 20150901
